FAERS Safety Report 8864869 (Version 1)
Quarter: 2012Q4

REPORT INFORMATION
  Report Type: 
  Country: US (occurrence: US)
  Receive Date: 20121024
  Receipt Date: 20121024
  Transmission Date: 20130627
  Serious: No
  Sender: FDA-Public Use
  Company Number: US-AMGEN-USASP2011069709

PATIENT
  Age: 71 Year
  Sex: Female
  Weight: 64.4 kg

DRUGS (6)
  1. ENBREL [Suspect]
     Indication: PRODUCT USED FOR UNKNOWN INDICATION
     Dosage: 50 mg, 2 times/wk
  2. DIOVAN [Concomitant]
     Dosage: 40 mg, UNK
  3. SIMVASTATIN [Concomitant]
     Dosage: 5 mg, UNK
  4. METOPROLOL [Concomitant]
     Dosage: 25 mg, UNK
  5. MULTIVITAMIN                       /00097801/ [Concomitant]
  6. CALCIUM 500+D [Concomitant]

REACTIONS (3)
  - Injection site swelling [Unknown]
  - Injection site erythema [Unknown]
  - Injection site warmth [Unknown]
